FAERS Safety Report 12566153 (Version 1)
Quarter: 2016Q3

REPORT INFORMATION
  Report Type: Report from Study
  Country: CH (occurrence: CH)
  Receive Date: 20160718
  Receipt Date: 20160718
  Transmission Date: 20161109
  Serious: Yes (Death)
  Sender: FDA-Public Use
  Company Number: CH-SA-2016SA130734

PATIENT

DRUGS (3)
  1. ASPIRIN. [Suspect]
     Active Substance: ASPIRIN
     Route: 065
  2. PREGABALIN. [Suspect]
     Active Substance: PREGABALIN
     Route: 065
  3. ENOXAPARIN SODIUM. [Suspect]
     Active Substance: ENOXAPARIN SODIUM
     Route: 065

REACTIONS (7)
  - Hepatocellular injury [Fatal]
  - Hypotonia [Fatal]
  - Shock [Fatal]
  - Renal failure [Fatal]
  - Foetal exposure during pregnancy [Unknown]
  - Metabolic acidosis [Fatal]
  - Respiratory distress [Fatal]
